FAERS Safety Report 9689576 (Version 3)
Quarter: 2014Q1

REPORT INFORMATION
  Report Type: Spontaneous
  Country: DE (occurrence: DE)
  Receive Date: 20131115
  Receipt Date: 20140103
  Transmission Date: 20141002
  Serious: Yes (Other)
  Sender: FDA-Public Use
  Company Number: DE-AMGEN-DEUSP2013079347

PATIENT
  Age: 74 Year
  Sex: Male
  Weight: 110 kg

DRUGS (9)
  1. NPLATE [Suspect]
     Indication: IMMUNE THROMBOCYTOPENIC PURPURA
     Dosage: 104 MUG, QWK
     Route: 058
     Dates: start: 20130924, end: 20131016
  2. NEUPOGEN [Suspect]
     Indication: AGRANULOCYTOSIS
     Dosage: 48, QD
     Route: 058
     Dates: start: 20130919, end: 20131015
  3. REVOLADE [Suspect]
     Indication: AGRANULOCYTOSIS
     Dosage: 50 MG, UNK
     Dates: start: 20130614, end: 20130902
  4. RAMIPRIL HCT [Concomitant]
     Indication: HYPERTENSION
     Dosage: 5/25 MG, QD
     Route: 048
  5. PANTOZOL                           /01263204/ [Concomitant]
     Indication: PROPHYLAXIS
     Dosage: 40 MG, QD
     Route: 048
  6. PROPRANOLOL [Concomitant]
     Dosage: 40 MG, QD
  7. AMLODIPIN                          /00972401/ [Concomitant]
     Indication: HYPERTENSION
     Dosage: 10 MG, QD
     Route: 048
  8. TOREM                              /01036501/ [Concomitant]
     Indication: HYPERTENSION
     Dosage: 10 MG, QD
     Route: 048
  9. INSULIN [Concomitant]
     Indication: TYPE 2 DIABETES MELLITUS

REACTIONS (4)
  - Agranulocytosis [Recovering/Resolving]
  - Platelet count abnormal [Unknown]
  - Leukopenia [Unknown]
  - White blood cell count increased [Unknown]
